FAERS Safety Report 15065930 (Version 2)
Quarter: 2018Q3

REPORT INFORMATION
  Report Type: Spontaneous
  Country: JP (occurrence: JP)
  Receive Date: 20180626
  Receipt Date: 20180731
  Transmission Date: 20181010
  Serious: Yes (Other)
  Sender: FDA-Public Use
  Company Number: JP-RECORDATI RARE DISEASES INC.-JP-R13005-18-00161

PATIENT
  Age: 44 Day
  Sex: Male
  Weight: 1.46 kg

DRUGS (5)
  1. PAMIDRONAT [Concomitant]
     Active Substance: PAMIDRONATE DISODIUM
     Indication: OSTEOGENESIS IMPERFECTA
     Route: 042
  2. CALCIUM LACTATE HYDRATE [Concomitant]
     Active Substance: CALCIUM LACTATE
     Indication: PRODUCT USED FOR UNKNOWN INDICATION
     Route: 065
  3. PAMIDRONAT [Concomitant]
     Active Substance: PAMIDRONATE DISODIUM
     Route: 065
  4. ALFACALCIDOL [Concomitant]
     Active Substance: ALFACALCIDOL
     Indication: PRODUCT USED FOR UNKNOWN INDICATION
     Route: 065
  5. IBUPROFEN. [Suspect]
     Active Substance: IBUPROFEN
     Indication: OSTEOGENESIS IMPERFECTA
     Route: 065

REACTIONS (3)
  - Rash [Unknown]
  - Eyelid oedema [Unknown]
  - Off label use [Unknown]
